FAERS Safety Report 8227718-7 (Version None)
Quarter: 2012Q1

REPORT INFORMATION
  Report Type: 
  Country: None (occurrence: None)
  Receive Date: 20120322
  Receipt Date: 20120312
  Transmission Date: 20120608
  Serious: Yes (Hospitalization)
  Sender: FDA-Public Use
  Company Number: US-NOVOPROD-339058

PATIENT
  Age: 72 Year
  Sex: Female
  Weight: 92.517 kg

DRUGS (3)
  1. DIOVAN HCT [Concomitant]
     Indication: PRODUCT USED FOR UNKNOWN INDICATION
     Dosage: UNK
     Route: 065
  2. LEVEMIR [Suspect]
     Indication: TYPE 2 DIABETES MELLITUS
     Dosage: 20 U, QD (IN THE EVENING)
     Route: 058
     Dates: start: 20111019, end: 20111031
  3. ASPIRIN [Concomitant]
     Indication: PRODUCT USED FOR UNKNOWN INDICATION
     Dosage: UNK
     Route: 065

REACTIONS (10)
  - NIGHT SWEATS [None]
  - RASH [None]
  - CHAPPED LIPS [None]
  - SWELLING FACE [None]
  - PYREXIA [None]
  - JOINT SWELLING [None]
  - LIP BLISTER [None]
  - ARTHRALGIA [None]
  - EYELID OEDEMA [None]
  - MYALGIA [None]
